FAERS Safety Report 8852844 (Version 1)
Quarter: 2012Q4

REPORT INFORMATION
  Report Type: 
  Country: BR (occurrence: US)
  Receive Date: 20121022
  Receipt Date: 20121022
  Transmission Date: 20130627
  Serious: No
  Sender: FDA-Public Use
  Company Number: US-ASTRAZENECA-2012SE77075

PATIENT
  Age: 63 Year
  Sex: Male

DRUGS (2)
  1. ATACAND HCT [Suspect]
     Dosage: 16/12.5mg, UNKNOWN
     Route: 048
     Dates: start: 2009
  2. NEXIUM [Suspect]
     Indication: PHARYNGITIS
     Route: 048
     Dates: start: 2009

REACTIONS (3)
  - Blood pressure abnormal [Unknown]
  - Nervousness [Unknown]
  - Off label use [Not Recovered/Not Resolved]
